FAERS Safety Report 22192854 (Version 1)
Quarter: 2023Q2

REPORT INFORMATION
  Report Type: Spontaneous
  Country: US (occurrence: None)
  Receive Date: 20230410
  Receipt Date: 20230410
  Transmission Date: 20230722
  Serious: Yes (Other)
  Sender: FDA-Public Use
  Company Number: None

PATIENT
  Age: 63 Year
  Sex: Female
  Weight: 64.35 kg

DRUGS (2)
  1. ARMOUR THYROID [Suspect]
     Active Substance: THYROID, PORCINE
     Indication: Product used for unknown indication
     Dosage: FREQUENCY : EVERY 6 HOURS?
  2. ADVIL [Concomitant]
     Active Substance: IBUPROFEN

REACTIONS (18)
  - Therapeutic product effect variable [None]
  - Adverse drug reaction [None]
  - Product quality issue [None]
  - Heart rate decreased [None]
  - Blood pressure increased [None]
  - Anxiety [None]
  - Sleep disorder [None]
  - Rash pruritic [None]
  - Nausea [None]
  - Dizziness [None]
  - Blood thyroid stimulating hormone abnormal [None]
  - Anti-thyroid antibody increased [None]
  - Lower urinary tract symptoms [None]
  - Eye irritation [None]
  - Lacrimation increased [None]
  - Anti-thyroid antibody decreased [None]
  - Tri-iodothyronine free abnormal [None]
  - Thyroxine free abnormal [None]

NARRATIVE: CASE EVENT DATE: 20230325
